FAERS Safety Report 6259759-3 (Version None)
Quarter: 2009Q3

REPORT INFORMATION
  Report Type: 
  Country: None (occurrence: None)
  Receive Date: 20090708
  Receipt Date: 20090630
  Transmission Date: 20100115
  Serious: Yes (Hospitalization)
  Sender: FDA-Public Use
  Company Number: PHEH2009US07028

PATIENT
  Age: 44 Year
  Sex: Female

DRUGS (3)
  1. RECLAST [Suspect]
     Dosage: 5 MG
  2. METFORMIN HCL [Concomitant]
  3. KADIAN ^KNOLL^ [Concomitant]

REACTIONS (2)
  - BLOOD CREATININE INCREASED [None]
  - URINARY RETENTION [None]
